FAERS Safety Report 24149358 (Version 2)
Quarter: 2024Q3

REPORT INFORMATION
  Report Type: Spontaneous
  Country: US (occurrence: US)
  Receive Date: 20240730
  Receipt Date: 20240730
  Transmission Date: 20241016
  Serious: Yes (Other)
  Sender: BRISTOL MYERS SQUIBB
  Company Number: US-BRISTOL-MYERS SQUIBB COMPANY-2024-114497

PATIENT
  Age: 80 Year
  Sex: Female
  Weight: 86.2 kg

DRUGS (12)
  1. REVLIMID [Suspect]
     Active Substance: LENALIDOMIDE
     Indication: Plasma cell myeloma
     Dosage: DAILY
     Route: 048
  2. CARDIZEM LA [Concomitant]
     Active Substance: DILTIAZEM HYDROCHLORIDE
  3. CICLOPIROX [Concomitant]
     Active Substance: CICLOPIROX
     Dosage: SOLUTION
     Route: 061
  4. CICLOPIROX [Concomitant]
     Active Substance: CICLOPIROX
     Dosage: 100 GM
  5. HYDROCHLOROTHIAZIDE [Concomitant]
     Active Substance: HYDROCHLOROTHIAZIDE
  6. LIDODERM [Concomitant]
     Active Substance: LIDOCAINE
  7. TIZANIDINE [Concomitant]
     Active Substance: TIZANIDINE
  8. DICLOFENAC [Concomitant]
     Active Substance: DICLOFENAC
     Dosage: 100 GM (OTC)
  9. ALBUTEROL [Concomitant]
     Active Substance: ALBUTEROL
     Dosage: 2.5 MG/3 ML (60*3 ML)
  10. ELIQUIS [Concomitant]
     Active Substance: APIXABAN
  11. PREGABALIN [Concomitant]
     Active Substance: PREGABALIN
  12. VITAMIN D NOS [Concomitant]
     Active Substance: CHOLECALCIFEROL\ERGOCALCIFEROL
     Dosage: SOFT GEL

REACTIONS (3)
  - Fall [Unknown]
  - Humerus fracture [Unknown]
  - Fracture pain [Recovering/Resolving]

NARRATIVE: CASE EVENT DATE: 20240626
